FAERS Safety Report 6381763-5 (Version None)
Quarter: 2009Q3

REPORT INFORMATION
  Report Type: 
  Country: None (occurrence: None)
  Receive Date: 20090930
  Receipt Date: 20070320
  Transmission Date: 20100115
  Serious: Yes (Other)
  Sender: FDA-Public Use
  Company Number: US-ASTRAZENECA-2006UW24517

PATIENT
  Age: 10227 Day
  Sex: Male
  Weight: 102.5 kg

DRUGS (23)
  1. SEROQUEL [Suspect]
     Indication: SCHIZOPHRENIA
     Route: 048
     Dates: start: 19980101
  2. SEROQUEL [Suspect]
     Indication: BIPOLAR DISORDER
     Route: 048
     Dates: start: 19980101
  3. SEROQUEL [Suspect]
     Indication: DEPRESSION
     Route: 048
     Dates: start: 19980101
  4. SEROQUEL [Suspect]
     Route: 048
     Dates: start: 20020101
  5. SEROQUEL [Suspect]
     Route: 048
     Dates: start: 20020101
  6. SEROQUEL [Suspect]
     Route: 048
     Dates: start: 20020101
  7. SEROQUEL [Suspect]
     Dosage: 200-900 MG
     Route: 048
     Dates: start: 20030219
  8. SEROQUEL [Suspect]
     Dosage: 200-900 MG
     Route: 048
     Dates: start: 20030219
  9. SEROQUEL [Suspect]
     Dosage: 200-900 MG
     Route: 048
     Dates: start: 20030219
  10. ABILIFY [Concomitant]
  11. CLOZARIL [Concomitant]
  12. GEODON [Concomitant]
  13. RISPERDAL [Concomitant]
  14. THORAZINE [Concomitant]
  15. TRILAFON [Concomitant]
  16. ZYPREXA [Concomitant]
  17. DEPAKOTE [Concomitant]
     Dates: start: 20020101
  18. ATIVAN [Concomitant]
     Dates: start: 20000101
  19. TRIAVIL [Concomitant]
     Indication: SLEEP DISORDER
     Dates: start: 20000101
  20. PREVACID [Concomitant]
     Indication: GASTROOESOPHAGEAL REFLUX DISEASE
     Dates: start: 20030219
  21. NORVASC [Concomitant]
     Indication: HYPERTENSION
     Route: 048
     Dates: start: 20060101
  22. VALIUM [Concomitant]
     Dates: start: 20050101
  23. LITHIUM [Concomitant]
     Dosage: 100-900 MG
     Dates: start: 20050101

REACTIONS (7)
  - DIABETES MELLITUS [None]
  - DIABETES MELLITUS INADEQUATE CONTROL [None]
  - DIABETIC COMA [None]
  - NEUROPATHY PERIPHERAL [None]
  - PANCREATITIS [None]
  - TYPE 1 DIABETES MELLITUS [None]
  - TYPE 2 DIABETES MELLITUS [None]
